FAERS Safety Report 5357803-9 (Version None)
Quarter: 2007Q2

REPORT INFORMATION
  Report Type: 
  Country: None (occurrence: None)
  Receive Date: 20070614
  Receipt Date: 20070612
  Transmission Date: 20071010
  Serious: Yes (Hospitalization, Other)
  Sender: FDA-Public Use
  Company Number: BR-ABBOTT-07P-020-0369664-00

PATIENT
  Age: 59 Year
  Sex: Male
  Weight: 80 kg

DRUGS (3)
  1. HUMIRA [Suspect]
     Indication: PSORIATIC ARTHROPATHY
     Dosage: APPLICATION
     Route: 058
     Dates: start: 20060801
  2. MAGISTRAL FORMULA [Concomitant]
     Indication: PSORIATIC ARTHROPATHY
     Route: 048
     Dates: start: 19970101
  3. METHOTREXATE [Concomitant]
     Indication: PSORIATIC ARTHROPATHY
     Route: 048
     Dates: start: 19970101

REACTIONS (8)
  - ANKLE FRACTURE [None]
  - ARTHRALGIA [None]
  - CATARACT [None]
  - MYOPIA [None]
  - OSTEOPOROSIS [None]
  - PAIN [None]
  - RIB FRACTURE [None]
  - SPINAL FRACTURE [None]
